FAERS Safety Report 12242165 (Version 1)
Quarter: 2016Q2

REPORT INFORMATION
  Report Type: Spontaneous
  Country: US (occurrence: US)
  Receive Date: 20160406
  Receipt Date: 20160406
  Transmission Date: 20160815
  Serious: No
  Sender: FDA-Public Use
  Company Number: US-PFIZER INC-2016172620

PATIENT
  Age: 84 Year
  Sex: Female
  Weight: 73.92 kg

DRUGS (2)
  1. IBRANCE [Suspect]
     Active Substance: PALBOCICLIB
     Indication: BREAST CANCER
     Dosage: 125 MG, DAYS 1-21 DAYS, EVERY 28 DAYS
     Route: 048
     Dates: start: 20160305
  2. IBRANCE [Suspect]
     Active Substance: PALBOCICLIB
     Dosage: 100 MG, UNK (TAKE DAY 17 AND DAY 18, THEN HOLD FOR 10 DAYS PRIOR TO STARTING)

REACTIONS (2)
  - White blood cell count decreased [Unknown]
  - Fatigue [Unknown]

NARRATIVE: CASE EVENT DATE: 2016
